FAERS Safety Report 8970197 (Version 1)
Quarter: 2012Q4

REPORT INFORMATION
  Report Type: 
  Country: JP (occurrence: JP)
  Receive Date: 20121218
  Receipt Date: 20121218
  Transmission Date: 20130627
  Serious: Yes (Hospitalization)
  Sender: FDA-Public Use
  Company Number: JP-009507513-1212JPN006273

PATIENT
  Age: 51 Year
  Sex: Female

DRUGS (1)
  1. RINDERON [Suspect]
     Indication: MENINGIOMA
     Dosage: 0.5 mg, qd
     Route: 048
     Dates: start: 201110

REACTIONS (1)
  - Cytomegalovirus enterocolitis [Recovering/Resolving]
